FAERS Safety Report 8979401 (Version 4)
Quarter: 2013Q2

REPORT INFORMATION
  Report Type: Spontaneous
  Country: US (occurrence: US)
  Receive Date: 20121221
  Receipt Date: 20130422
  Transmission Date: 20140414
  Serious: Yes (Hospitalization, Other)
  Sender: FDA-Public Use
  Company Number: US-009507513-1103USA00919

PATIENT
  Sex: Female
  Weight: 65.31 kg

DRUGS (4)
  1. FOSAMAX [Suspect]
     Indication: OSTEOPENIA
     Dosage: 70 MG, QW
     Route: 048
     Dates: start: 200310, end: 200507
  2. FOSAMAX [Suspect]
     Dosage: 70 MG, QW
     Route: 048
     Dates: start: 200708, end: 200801
  3. FOSAMAX PLUS D [Suspect]
     Indication: OSTEOPENIA
     Dosage: 70 MG, QW
     Route: 048
     Dates: start: 200508, end: 200707
  4. ALENDRONATE SODIUM [Suspect]
     Indication: OSTEOPENIA
     Dosage: 70 MG,QW
     Route: 048
     Dates: start: 20090728, end: 201004

REACTIONS (23)
  - Femur fracture [Unknown]
  - Open reduction of fracture [Unknown]
  - Femur fracture [Unknown]
  - Open reduction of fracture [Unknown]
  - Fall [Unknown]
  - Renal failure [Unknown]
  - Cholecystectomy [Unknown]
  - Blood cholesterol increased [Unknown]
  - Hypertension [Not Recovered/Not Resolved]
  - Bursitis [Unknown]
  - Gait disturbance [Not Recovered/Not Resolved]
  - Accident [Unknown]
  - Urinary tract infection [Unknown]
  - Hyperlipidaemia [Unknown]
  - Osteoarthritis [Unknown]
  - Haemorrhagic anaemia [Unknown]
  - Rhinitis allergic [Unknown]
  - Surgery [Unknown]
  - Fistula [Unknown]
  - Stress fracture [Unknown]
  - Urinary tract infection [Recovered/Resolved]
  - Tooth extraction [Unknown]
  - Erythema [Unknown]
